FAERS Safety Report 7935258-5 (Version None)
Quarter: 2011Q4

REPORT INFORMATION
  Report Type: 
  Country: None (occurrence: None)
  Receive Date: 20111122
  Receipt Date: 20111114
  Transmission Date: 20120403
  Serious: Yes (Other)
  Sender: FDA-Public Use
  Company Number: DE-PFIZER INC-2011277846

PATIENT
  Age: 55 Year
  Sex: Male
  Weight: 176 kg

DRUGS (5)
  1. DEXAMETHASONE [Concomitant]
     Indication: BRAIN OEDEMA
     Dosage: 8MG, 4MG. 0MG (DAILY DOSE AT UNKNOWN FREQUENCY)
  2. CYCLOPHOSPHAMIDE [Concomitant]
     Dosage: UNK
     Dates: start: 20111103
  3. BEVACIZUMAB [Concomitant]
     Dosage: UNK
     Dates: start: 20111103
  4. TEMSIROLIMUS [Suspect]
     Dosage: UNK
     Dates: start: 20110712
  5. IRINOTECAN HCL [Suspect]
     Dosage: UNK
     Dates: start: 20110712

REACTIONS (2)
  - CHEST PAIN [None]
  - LUNG INFILTRATION [None]
